FAERS Safety Report 6540136-2 (Version None)
Quarter: 2010Q1

REPORT INFORMATION
  Report Type: 
  Country: None (occurrence: None)
  Receive Date: 20100115
  Receipt Date: 20100105
  Transmission Date: 20100710
  Serious: Yes (Death, Other)
  Sender: FDA-Public Use
  Company Number: US-JNJFOC-20100102412

PATIENT
  Age: 82 Year
  Sex: Male
  Weight: 102.06 kg

DRUGS (2)
  1. TYLENOL (CAPLET) [Suspect]
     Route: 048
  2. TYLENOL (CAPLET) [Suspect]
     Indication: ARTHRITIS
     Route: 048

REACTIONS (3)
  - INTENTIONAL DRUG MISUSE [None]
  - PRODUCT QUALITY ISSUE [None]
  - STAPHYLOCOCCAL INFECTION [None]
